FAERS Safety Report 23789202 (Version 2)
Quarter: 2024Q2

REPORT INFORMATION
  Report Type: Spontaneous
  Country: JP (occurrence: JP)
  Receive Date: 20240426
  Receipt Date: 20240516
  Transmission Date: 20240716
  Serious: Yes (Death, Hospitalization)
  Sender: FDA-Public Use
  Company Number: JP-JNJFOC-20240480814

PATIENT
  Age: 12 Year
  Sex: Female

DRUGS (2)
  1. UPTRAVI [Suspect]
     Active Substance: SELEXIPAG
     Indication: Pulmonary hypertension
     Route: 048
  2. UPTRAVI [Suspect]
     Active Substance: SELEXIPAG
     Route: 048

REACTIONS (2)
  - Pulmonary arterial hypertension [Fatal]
  - Epilepsy [Unknown]
